FAERS Safety Report 5871577-4 (Version None)
Quarter: 2008Q3

REPORT INFORMATION
  Report Type: 
  Country: None (occurrence: None)
  Receive Date: 20080905
  Receipt Date: 20080522
  Transmission Date: 20090109
  Serious: Yes (Other)
  Sender: FDA-Public Use
  Company Number: A0729251A

PATIENT
  Age: 86 Year
  Sex: Male

DRUGS (4)
  1. REQUIP [Suspect]
     Indication: PARKINSON'S DISEASE
     Dosage: 2MG SEE DOSAGE TEXT
     Route: 048
     Dates: start: 19980101
  2. FOSAMAX [Concomitant]
  3. FLOMAX [Concomitant]
  4. LIPITOR [Concomitant]

REACTIONS (4)
  - BLOOD PRESSURE INCREASED [None]
  - HALLUCINATION [None]
  - SOMNOLENCE [None]
  - TREMOR [None]
